FAERS Safety Report 5756059-2 (Version None)
Quarter: 2008Q2

REPORT INFORMATION
  Report Type: 
  Country: None (occurrence: None)
  Receive Date: 20080602
  Receipt Date: 20080529
  Transmission Date: 20081010
  Serious: Yes (Life-Threatening, Hospitalization, Disabling)
  Sender: FDA-Public Use
  Company Number: PHEH2008US04082

PATIENT
  Sex: Female
  Weight: 77.097 kg

DRUGS (8)
  1. DIOVAN HCT [Suspect]
     Indication: HYPERTENSION
     Dosage: 80 MG VAL/ 12.5 MG HCT, QD
     Route: 048
     Dates: start: 20020801, end: 20080201
  2. DIOVAN HCT [Suspect]
     Dosage: 160MG VAL/12.5MG HCT, QD
     Dates: start: 20080201
  3. DIOVAN HCT [Suspect]
     Dosage: 80MG VAL/12.5MG HCT
     Dates: end: 20080331
  4. DIOVAN HCT [Suspect]
     Dosage: 80MG VAL/12.5MG HCT, QD
     Dates: start: 20080401
  5. SINGULAIR [Concomitant]
     Indication: HYPERSENSITIVITY
     Dosage: 10 MG, QD
     Route: 048
  6. NEXIUM [Concomitant]
     Indication: GASTROOESOPHAGEAL REFLUX DISEASE
     Dosage: 40 MG, BID
     Route: 048
  7. CLARITIN [Concomitant]
     Indication: HYPERSENSITIVITY
     Dosage: 10 MG, QD
     Route: 048
  8. ZANTAC [Concomitant]
     Indication: GASTROOESOPHAGEAL REFLUX DISEASE
     Dosage: 150 MG, QHS
     Route: 048

REACTIONS (7)
  - ACTIVITIES OF DAILY LIVING IMPAIRED [None]
  - BLOOD CREATINE PHOSPHOKINASE INCREASED [None]
  - CHEST PAIN [None]
  - DYSPNOEA [None]
  - HYPERHIDROSIS [None]
  - MYALGIA [None]
  - MYOCARDIAL ISCHAEMIA [None]
